FAERS Safety Report 4477286-0 (Version None)
Quarter: 2004Q4

REPORT INFORMATION
  Report Type: 
  Country: None (occurrence: None)
  Receive Date: 20041013
  Receipt Date: 20040923
  Transmission Date: 20050328
  Serious: Yes (Hospitalization)
  Sender: FDA-Public Use
  Company Number: F01200401358

PATIENT
  Age: 63 Year
  Sex: Male

DRUGS (2)
  1. XATRAL -(ALFUZOSIN)-TABLET PR-10 MG [Suspect]
     Indication: BENIGN PROSTATIC HYPERPLASIA
     Dosage: 10 MG OD, ORAL
     Route: 048
     Dates: start: 20040131, end: 20040805
  2. SPESICOR (METOPROLOL TARTRATE) [Concomitant]

REACTIONS (1)
  - ATRIAL FIBRILLATION [None]
